FAERS Safety Report 18135432 (Version 1)
Quarter: 2020Q3

REPORT INFORMATION
  Report Type: Spontaneous
  Country: DE (occurrence: DE)
  Receive Date: 20200811
  Receipt Date: 20200811
  Transmission Date: 20201103
  Serious: Yes (Other)
  Sender: FDA-Public Use
  Company Number: DE-PFIZER INC-2020300455

PATIENT
  Age: 1 Day
  Sex: Female
  Weight: 2.03 kg

DRUGS (5)
  1. SERTRALINE HCL [Suspect]
     Active Substance: SERTRALINE HYDROCHLORIDE
     Indication: DEPRESSION
     Dosage: 200 [MG/D (UP TO 50) ], 8.6. ? 37.3. GESTATIONAL WEEK
     Route: 064
     Dates: start: 20190613, end: 20191230
  2. INFLUVAC [Concomitant]
     Active Substance: INFLUENZA VIRUS VACCINE TRIVALENT TYPE A+B
     Indication: INFLUENZA IMMUNISATION
     Dosage: UNK, 34.4. ? 34.4. GESTATIONAL WEEK
     Route: 064
     Dates: start: 20191210, end: 20191210
  3. DULOXETINE. [Concomitant]
     Active Substance: DULOXETINE
     Indication: DEPRESSION
     Dosage: 90 [MG/D ], 0. ? 5. GESTATIONAL WEEK
     Route: 064
  4. DOPPELHERZ [Concomitant]
     Active Substance: DIETARY SUPPLEMENT
     Indication: PROPHYLAXIS OF NEURAL TUBE DEFECT
     Dosage: UNK, 4.5. ? 35.6. GESTATIONAL WEEK
     Route: 048
  5. ATOSIL [PROMETHAZINE HYDROCHLORIDE] [Concomitant]
     Active Substance: PROMETHAZINE HYDROCHLORIDE
     Indication: RESTLESSNESS
     Dosage: 30 [MG/D (BIS 20) ]/ INITIALLY DURING THE HOSPITAL STAY EVERY DAY, THEN IF REQUIRED, 8.6. ? 35.6. GE
     Route: 064
     Dates: start: 20190613, end: 20191219

REACTIONS (4)
  - Agitation neonatal [Recovered/Resolved]
  - Foetal exposure during pregnancy [Recovered/Resolved]
  - Small for dates baby [Unknown]
  - Hypoglycaemia neonatal [Recovered/Resolved]

NARRATIVE: CASE EVENT DATE: 20191230
